FAERS Safety Report 5606387-6 (Version None)
Quarter: 2008Q1

REPORT INFORMATION
  Report Type: 
  Country: None (occurrence: None)
  Receive Date: 20080129
  Receipt Date: 20070919
  Transmission Date: 20080703
  Serious: No
  Sender: FDA-Public Use
  Company Number: A0676768A

PATIENT
  Age: 52 Year
  Sex: Male

DRUGS (2)
  1. BUPROPION HCL [Suspect]
     Indication: DEPRESSION
     Dosage: 150MG TWICE PER DAY
     Route: 048
     Dates: start: 20070727, end: 20070730
  2. NO CONCURRENT MEDICATION [Concomitant]

REACTIONS (7)
  - ABASIA [None]
  - CONFUSIONAL STATE [None]
  - DYSSTASIA [None]
  - IMPAIRED DRIVING ABILITY [None]
  - MUSCULAR WEAKNESS [None]
  - PHARMACEUTICAL PRODUCT COMPLAINT [None]
  - SMOKER [None]
